FAERS Safety Report 9642371 (Version 2)
Quarter: 2013Q4

REPORT INFORMATION
  Report Type: Spontaneous
  Country: US (occurrence: US)
  Receive Date: 20131024
  Receipt Date: 20131115
  Transmission Date: 20140711
  Serious: Yes (Hospitalization, Other)
  Sender: FDA-Public Use
  Company Number: US-BIOGENIDEC-2013BI101616

PATIENT
  Sex: Female

DRUGS (6)
  1. TECFIDERA [Suspect]
     Indication: PRODUCT USED FOR UNKNOWN INDICATION
     Route: 048
  2. SINGULAIR [Concomitant]
  3. ALLEGRA ODT [Concomitant]
  4. AMANTADINE [Concomitant]
  5. ADVAIR HFA [Concomitant]
  6. PROAIR HFA [Concomitant]

REACTIONS (4)
  - Platelet count decreased [Unknown]
  - Infection [Unknown]
  - White blood cell count increased [Recovered/Resolved]
  - Prescribed underdose [Not Recovered/Not Resolved]
